FAERS Safety Report 24543464 (Version 3)
Quarter: 2024Q4

REPORT INFORMATION
  Report Type: Report from Study
  Country: US (occurrence: US)
  Receive Date: 20241024
  Receipt Date: 20241118
  Transmission Date: 20250115
  Serious: Yes (Other)
  Sender: DECIPHERA PHARMACEUTICALS
  Company Number: US-DECIPHERA PHARMACEUTICALS LLC-2024US000901

PATIENT
  Age: 75 Year
  Sex: Female
  Weight: 54.3 kg

DRUGS (2)
  1. QINLOCK [Suspect]
     Active Substance: RIPRETINIB
     Indication: Gastrointestinal stromal tumour
     Dosage: 150 MILLIGRAM, QD
     Route: 048
     Dates: start: 20231021, end: 20240930
  2. QINLOCK [Suspect]
     Active Substance: RIPRETINIB
     Indication: Neoplasm malignant
     Dosage: UNK UNK, QD,  2 TABLETS ONCE DAILY MONDAY - FRIDAY, THEN 3 TABLETS ONCE DAILY ON SATURDAY.
     Route: 048

REACTIONS (3)
  - Surgery [Unknown]
  - Inappropriate schedule of product administration [Unknown]
  - Underdose [Unknown]
